FAERS Safety Report 24000633 (Version 1)
Quarter: 2024Q2

REPORT INFORMATION
  Report Type: Spontaneous
  Country: JP (occurrence: None)
  Receive Date: 20240621
  Receipt Date: 20240621
  Transmission Date: 20240715
  Serious: Yes (Other)
  Sender: FDA-Public Use
  Company Number: 2024A140739

PATIENT
  Age: 56 Year
  Sex: Female

DRUGS (1)
  1. TEZSPIRE [Suspect]
     Active Substance: TEZEPELUMAB-EKKO
     Dosage: DOSE UNKNOWN
     Route: 058
     Dates: start: 20240612

REACTIONS (2)
  - Hypertension [Unknown]
  - Chest pain [Unknown]

NARRATIVE: CASE EVENT DATE: 20240613
